FAERS Safety Report 7167382-1 (Version None)
Quarter: 2010Q4

REPORT INFORMATION
  Report Type: 
  Country: None (occurrence: None)
  Receive Date: 20101216
  Receipt Date: 20100113
  Transmission Date: 20110411
  Serious: No
  Sender: FDA-Public Use
  Company Number: A0814653A

PATIENT
  Age: 65 Year
  Sex: Female
  Weight: 82.7 kg

DRUGS (9)
  1. COMMIT [Suspect]
     Dates: start: 20091027, end: 20091029
  2. NITROGLYCERIN [Concomitant]
     Indication: CORONARY ARTERY DISEASE
     Dosage: .4MG AS REQUIRED
     Route: 060
  3. ISOSORBIDE MONONITRATE [Concomitant]
     Indication: CORONARY ARTERY DISEASE
     Dosage: 30MG PER DAY
  4. LISINOPRIL [Concomitant]
     Indication: HYPERTENSION
     Dosage: 40MG PER DAY
  5. AMLODIPINE [Concomitant]
     Indication: HYPERTENSION
     Dosage: 5MG PER DAY
  6. METOPROLOL TARTRATE [Concomitant]
     Indication: HYPERTENSION
     Dosage: 100MG TWICE PER DAY
  7. SIMVASTATIN [Concomitant]
     Dosage: 80MG AT NIGHT
  8. PLAVIX [Concomitant]
     Indication: CORONARY ARTERY DISEASE
     Dosage: 75MG PER DAY
  9. GLUCOPHAGE [Concomitant]
     Indication: DIABETES MELLITUS
     Dosage: 500MG PER DAY

REACTIONS (8)
  - EATING DISORDER [None]
  - MUSCULOSKELETAL DISCOMFORT [None]
  - ORAL DISCOMFORT [None]
  - ORAL PAIN [None]
  - OROPHARYNGEAL PAIN [None]
  - PRURITUS [None]
  - STOMATITIS [None]
  - THROAT IRRITATION [None]
